FAERS Safety Report 6407508-8 (Version None)
Quarter: 2009Q4

REPORT INFORMATION
  Report Type: 
  Country: None (occurrence: None)
  Receive Date: 20091020
  Receipt Date: 20091009
  Transmission Date: 20100525
  Serious: Yes (Hospitalization)
  Sender: FDA-Public Use
  Company Number: US-JNJFOC-20091003675

PATIENT
  Sex: Female
  Weight: 55 kg

DRUGS (12)
  1. INFLIXIMAB [Suspect]
     Indication: CROHN'S DISEASE
     Route: 042
     Dates: start: 20050509, end: 20071023
  2. ANTACID TAB [Concomitant]
  3. PREDNISONE TAB [Concomitant]
  4. METHOTREXATE [Concomitant]
  5. ANTIBIOTICS [Concomitant]
     Indication: INFLAMMATORY BOWEL DISEASE
  6. 5-AMINOSALICYLIC ACID [Concomitant]
     Route: 048
  7. LIALDA [Concomitant]
  8. ACIPHEX [Concomitant]
  9. FOLIC ACID [Concomitant]
  10. FLAGYL [Concomitant]
  11. VITAMIN [Concomitant]
  12. HUMIRA [Concomitant]

REACTIONS (3)
  - CROHN'S DISEASE [None]
  - NIGHT SWEATS [None]
  - WEIGHT DECREASED [None]
